FAERS Safety Report 5394268-5 (Version None)
Quarter: 2007Q3

REPORT INFORMATION
  Report Type: 
  Country: None (occurrence: None)
  Receive Date: 20070723
  Receipt Date: 20070522
  Transmission Date: 20080115
  Serious: No
  Sender: FDA-Public Use
  Company Number: A0652362A

PATIENT
  Age: 80 Year
  Sex: Male

DRUGS (9)
  1. AVANDIA [Suspect]
     Dosage: 8MG TWICE PER DAY
     Route: 048
     Dates: start: 20060101, end: 20060101
  2. GLYBURIDE [Concomitant]
  3. METOPROLOL TARTRATE [Concomitant]
  4. FINASTERIDE [Concomitant]
  5. PROSCAR [Concomitant]
  6. OMEPRAZOLE [Concomitant]
  7. ASPIRIN [Concomitant]
  8. INSULIN [Concomitant]
  9. SIMVASTATIN [Concomitant]

REACTIONS (4)
  - BACK PAIN [None]
  - FATIGUE [None]
  - OEDEMA PERIPHERAL [None]
  - WEIGHT INCREASED [None]
